FAERS Safety Report 25345110 (Version 2)
Quarter: 2025Q2

REPORT INFORMATION
  Report Type: Spontaneous
  Country: US (occurrence: US)
  Receive Date: 20250522
  Receipt Date: 20250529
  Transmission Date: 20250717
  Serious: Yes (Other)
  Sender: ABBVIE
  Company Number: US-ABBVIE-6288464

PATIENT
  Age: 67 Year
  Sex: Male

DRUGS (3)
  1. REFRESH TEARS [Suspect]
     Active Substance: CARBOXYMETHYLCELLULOSE SODIUM
     Indication: Dry eye
     Route: 047
     Dates: start: 202505, end: 202505
  2. REFRESH TEARS [Suspect]
     Active Substance: CARBOXYMETHYLCELLULOSE SODIUM
     Indication: Dry eye
     Route: 047
     Dates: start: 202409
  3. REFRESH TEARS [Suspect]
     Active Substance: CARBOXYMETHYLCELLULOSE SODIUM
     Indication: Dry eye
     Route: 047

REACTIONS (11)
  - Osteoarthritis [Unknown]
  - Eye irritation [Recovered/Resolved]
  - Strabismus [Unknown]
  - Hip arthroplasty [Unknown]
  - Vision blurred [Recovered/Resolved]
  - Visual impairment [Unknown]
  - Arthralgia [Recovered/Resolved]
  - Visual impairment [Unknown]
  - Eye irritation [Unknown]
  - Strabismus [Recovered/Resolved]
  - Vision blurred [Unknown]

NARRATIVE: CASE EVENT DATE: 20240901
